FAERS Safety Report 26059291 (Version 1)
Quarter: 2025Q4

REPORT INFORMATION
  Report Type: Spontaneous
  Country: US (occurrence: US)
  Receive Date: 20251118
  Receipt Date: 20251118
  Transmission Date: 20260118
  Serious: Yes (Other)
  Sender: ROCHE
  Company Number: US-ROCHE-10000431200

PATIENT
  Age: 55 Year
  Sex: Female
  Weight: 74.84 kg

DRUGS (12)
  1. ACTEMRA ACTPEN [Suspect]
     Active Substance: TOCILIZUMAB
     Indication: Rheumatoid arthritis
     Route: 058
     Dates: start: 2025
  2. ACTEMRA ACTPEN [Suspect]
     Active Substance: TOCILIZUMAB
     Route: 058
     Dates: start: 2008
  3. METHOTREXATE [Concomitant]
     Active Substance: METHOTREXATE
     Dosage: (8) 2.5 MG TABLETS
     Route: 048
     Dates: start: 2020
  4. METHOTREXATE [Concomitant]
     Active Substance: METHOTREXATE
     Route: 048
     Dates: end: 2019
  5. AMANTADINE [Concomitant]
     Active Substance: AMANTADINE
     Route: 048
     Dates: start: 2024
  6. RYTARY [Concomitant]
     Active Substance: CARBIDOPA\LEVODOPA
     Dosage: DOSE 36.25 - 145 MG
     Route: 048
     Dates: start: 2023
  7. RYTARY [Concomitant]
     Active Substance: CARBIDOPA\LEVODOPA
     Dosage: DOSE 61.25 - 245 MG
     Route: 048
     Dates: start: 2023
  8. LOSARTAN [Concomitant]
     Active Substance: LOSARTAN
     Dosage: TAKES AT NIGHT
     Route: 048
     Dates: start: 2024
  9. METHYLPREDNISOLONE [Concomitant]
     Active Substance: METHYLPREDNISOLONE
     Dosage: TAPERING DOSE FOR 6 DAYS WITH 4 MG TABLETS
     Route: 048
  10. MAGNESIUM [Concomitant]
     Active Substance: MAGNESIUM
     Route: 048
  11. CALCIUM [Concomitant]
     Active Substance: CALCIUM
     Dosage: TAKES IN THE MORNING
     Route: 048
  12. ZINC [Concomitant]
     Active Substance: ZINC
     Dosage: TAKES AT NIGHT
     Route: 048

REACTIONS (9)
  - Parkinson^s disease [Not Recovered/Not Resolved]
  - Hypertension [Not Recovered/Not Resolved]
  - Rheumatoid arthritis [Recovered/Resolved]
  - Blood cholesterol increased [Unknown]
  - Hepatic enzyme increased [Not Recovered/Not Resolved]
  - Product dose omission issue [Unknown]
  - Needle issue [Unknown]
  - Weight increased [Unknown]
  - Cataract [Unknown]

NARRATIVE: CASE EVENT DATE: 20100101
